FAERS Safety Report 6860868-6 (Version None)
Quarter: 2010Q3

REPORT INFORMATION
  Report Type: 
  Country: None (occurrence: None)
  Receive Date: 20100720
  Receipt Date: 20100715
  Transmission Date: 20110219
  Serious: Yes (Hospitalization)
  Sender: FDA-Public Use
  Company Number: GB-BRISTOL-MYERS SQUIBB COMPANY-15195522

PATIENT
  Age: 60 Year
  Sex: Male

DRUGS (8)
  1. ABILIFY [Suspect]
     Dosage: ARIPIPRAZOLE 15MG B/W FEB AND MAY 2010 AND 20MG SINCE MAY 2010.
  2. CO-BENELDOPA [Concomitant]
  3. SINEMET [Concomitant]
  4. LOFEPRAMINE [Concomitant]
  5. LACTULOSE [Concomitant]
  6. SENNA [Concomitant]
     Dosage: FORMULATION:TABS.
  7. LORAZEPAM [Concomitant]
  8. PARACETAMOL [Concomitant]

REACTIONS (1)
  - GASTROSTOMY TUBE INSERTION [None]
